FAERS Safety Report 4826866-9 (Version None)
Quarter: 2005Q4

REPORT INFORMATION
  Report Type: 
  Country: None (occurrence: None)
  Receive Date: 20051114
  Receipt Date: 20051101
  Transmission Date: 20060501
  Serious: Yes (Life-Threatening, Hospitalization)
  Sender: FDA-Public Use
  Company Number: US-AMGEN-US156820

PATIENT
  Age: 77 Year
  Sex: Female

DRUGS (10)
  1. SENSIPAR [Suspect]
     Indication: HYPERPARATHYROIDISM PRIMARY
     Route: 048
     Dates: start: 20040701
  2. NEO-SYNEPHRINE HYDROCHLORIDE [Concomitant]
  3. ALENDRONATE SODIUM [Concomitant]
  4. COREG [Concomitant]
  5. ALTACE [Concomitant]
  6. NEO-SYNEPHRINE HYDROCHLORIDE [Concomitant]
  7. SINEMET [Concomitant]
  8. ARIMIDEX [Concomitant]
  9. FLONASE [Concomitant]
  10. BUSPAR [Concomitant]

REACTIONS (1)
  - MYOCARDIAL INFARCTION [None]
